FAERS Safety Report 20143025 (Version 3)
Quarter: 2022Q1

REPORT INFORMATION
  Report Type: Spontaneous
  Country: US (occurrence: US)
  Receive Date: 20211202
  Receipt Date: 20220120
  Transmission Date: 20220424
  Serious: Yes (Life-Threatening, Other)
  Sender: FDA-Public Use
  Company Number: US-PFIZER INC-202101646907

PATIENT
  Age: 13 Year
  Sex: Male
  Weight: 51.6 kg

DRUGS (6)
  1. ENBREL [Suspect]
     Active Substance: ETANERCEPT
     Indication: Toxic epidermal necrolysis
     Dosage: 50 MG, 2X/DAY (TWO 50 MG DOSES)
     Route: 058
  2. ENBREL [Suspect]
     Active Substance: ETANERCEPT
     Dosage: 50 MG, 2X/DAY (TWO 50 MG DOSES)
     Route: 065
  3. SULFAMETHOXAZOLE\TRIMETHOPRIM [Concomitant]
     Active Substance: SULFAMETHOXAZOLE\TRIMETHOPRIM
     Indication: Epididymitis
     Dosage: UNK (SECOND COURSE)
     Route: 048
  4. METHYLPREDNISOLONE [Concomitant]
     Active Substance: METHYLPREDNISOLONE
     Indication: Toxic epidermal necrolysis
     Dosage: 5 MG/KG (LOADING DOSE HOSPITAL DAY 2)
     Route: 042
  5. METHYLPREDNISOLONE [Concomitant]
     Active Substance: METHYLPREDNISOLONE
     Dosage: 2.5 MG/KG, 3X/DAY (MAINTENANCE THERAPY EVERY 8 HOURS)
     Route: 042
  6. TRIAMCINOLONE [Concomitant]
     Active Substance: TRIAMCINOLONE
     Indication: Toxic epidermal necrolysis
     Dosage: UNK UNK, 3X/DAY
     Route: 061

REACTIONS (2)
  - Off label use [Unknown]
  - Skin exfoliation [Recovering/Resolving]
